FAERS Safety Report 14235447 (Version 1)
Quarter: 2017Q4

REPORT INFORMATION
  Report Type: Spontaneous
  Country: US (occurrence: US)
  Receive Date: 20171129
  Receipt Date: 20171129
  Transmission Date: 20180321
  Serious: Yes (Death)
  Sender: FDA-Public Use
  Company Number: US-R-PHARM US LLC-2017RPM00095

PATIENT
  Sex: Female

DRUGS (1)
  1. IXEMPRA [Suspect]
     Active Substance: IXABEPILONE
     Indication: BREAST CANCER
     Dosage: UNK, ONCE
     Route: 042
     Dates: start: 20170531, end: 20170531

REACTIONS (1)
  - Death [Fatal]
